FAERS Safety Report 13694003 (Version 1)
Quarter: 2017Q2

REPORT INFORMATION
  Report Type: Spontaneous
  Country: US (occurrence: US)
  Receive Date: 20170626
  Receipt Date: 20170626
  Transmission Date: 20170830
  Serious: Yes (Life-Threatening, Hospitalization, Disabling)
  Sender: FDA-Public Use
  Company Number: None

PATIENT
  Age: 47 Year
  Sex: Female
  Weight: 74.25 kg

DRUGS (2)
  1. MULTI VITAMIN FOR WOMEN [Concomitant]
  2. ALPRAZOLAM. [Suspect]
     Active Substance: ALPRAZOLAM
     Indication: ANXIETY
     Route: 048
     Dates: start: 20150614, end: 20150723

REACTIONS (14)
  - Feeling abnormal [None]
  - Nausea [None]
  - Hyperhidrosis [None]
  - Anxiety [None]
  - Aggression [None]
  - Sensory disturbance [None]
  - Fear [None]
  - Confusional state [None]
  - Hallucination [None]
  - Abasia [None]
  - Extra dose administered [None]
  - Visual impairment [None]
  - Tongue discomfort [None]
  - Pain [None]

NARRATIVE: CASE EVENT DATE: 20150725
